FAERS Safety Report 20462936 (Version 1)
Quarter: 2022Q1

REPORT INFORMATION
  Report Type: Spontaneous
  Country: US (occurrence: None)
  Receive Date: 20220211
  Receipt Date: 20220211
  Transmission Date: 20220423
  Serious: Yes (unspecified)
  Sender: FDA-Public Use
  Company Number: None

PATIENT
  Age: 63 Year
  Sex: Female
  Weight: 85.3 kg

DRUGS (4)
  1. PACLITAXEL [Suspect]
     Active Substance: PACLITAXEL
     Indication: Uterine cancer
     Dosage: 677 MG  ONE TIME INFUSION;?
     Route: 041
     Dates: start: 20220125, end: 20220125
  2. Diphenhydramine 25 mg IVP [Concomitant]
     Dates: start: 20220125, end: 20220125
  3. EpiPen 0.3 mg IM [Concomitant]
     Dates: start: 20220125, end: 20220125
  4. Methylprednisolone 100 mg IVP [Concomitant]
     Dates: start: 20220125, end: 20220125

REACTIONS (6)
  - Feeling hot [None]
  - Chest discomfort [None]
  - Dyspnoea [None]
  - Flushing [None]
  - Erythema [None]
  - Infusion related reaction [None]

NARRATIVE: CASE EVENT DATE: 20220125
